FAERS Safety Report 19620937 (Version 1)
Quarter: 2021Q3

REPORT INFORMATION
  Report Type: Spontaneous
  Country: US (occurrence: US)
  Receive Date: 20210728
  Receipt Date: 20210728
  Transmission Date: 20211014
  Serious: No
  Sender: FDA-Public Use
  Company Number: US-CADILA HEALTHCARE LIMITED-US-ZYDUS-059005

PATIENT
  Age: 59 Year
  Sex: Male

DRUGS (1)
  1. MESALAMINE 1.2 GRAM TABLET, DELAYED RELEASE [Suspect]
     Active Substance: MESALAMINE
     Indication: COLITIS ULCERATIVE
     Dosage: 4.8 GRAM, QD
     Route: 048

REACTIONS (4)
  - Product formulation issue [Unknown]
  - Feeling abnormal [Unknown]
  - Product solubility abnormal [Unknown]
  - Product residue present [Unknown]

NARRATIVE: CASE EVENT DATE: 202011
